FAERS Safety Report 8251114-X (Version None)
Quarter: 2012Q2

REPORT INFORMATION
  Report Type: 
  Country: None (occurrence: None)
  Receive Date: 20120402
  Receipt Date: 20120328
  Transmission Date: 20120825
  Serious: Yes (Other)
  Sender: FDA-Public Use
  Company Number: JP-PFIZER INC-2012060013

PATIENT
  Age: 26 Year
  Sex: Female

DRUGS (2)
  1. PREDNISOLONE [Concomitant]
     Dosage: 5 MG/DAY
     Route: 048
  2. LYRICA [Suspect]
     Indication: FIBROMYALGIA
     Dosage: 300MG/DAY
     Route: 048
     Dates: start: 20110801, end: 20120301

REACTIONS (1)
  - AMENORRHOEA [None]
